FAERS Safety Report 4819537-6 (Version None)
Quarter: 2005Q4

REPORT INFORMATION
  Report Type: 
  Country: None (occurrence: None)
  Receive Date: 20051102
  Receipt Date: 20051025
  Transmission Date: 20060501
  Serious: Yes (Other)
  Sender: FDA-Public Use
  Company Number: US-2005-011009

PATIENT
  Age: 41 Year
  Sex: Female

DRUGS (1)
  1. BETASERON [Suspect]
     Indication: MULTIPLE SCLEROSIS
     Dosage: 6 MIU, EVERY 2D, SUBCUTANEOUS
     Route: 058
     Dates: start: 20050112, end: 20050603

REACTIONS (4)
  - CEREBROVASCULAR ACCIDENT [None]
  - DIABETES MELLITUS [None]
  - INJECTION SITE PHLEBITIS [None]
  - PNEUMONIA [None]
